FAERS Safety Report 7050130-3 (Version None)
Quarter: 2010Q4

REPORT INFORMATION
  Report Type: 
  Country: None (occurrence: None)
  Receive Date: 20101018
  Receipt Date: 20101006
  Transmission Date: 20110411
  Serious: Yes (Other)
  Sender: FDA-Public Use
  Company Number: CA-MERCK-1010USA00784

PATIENT
  Age: 7 Year
  Sex: Male
  Weight: 27 kg

DRUGS (1)
  1. SINGULAIR [Suspect]
     Route: 048

REACTIONS (5)
  - ABNORMAL BEHAVIOUR [None]
  - ANXIETY [None]
  - CRYING [None]
  - DEPRESSION [None]
  - SOCIAL AVOIDANT BEHAVIOUR [None]
